FAERS Safety Report 17831274 (Version 1)
Quarter: 2020Q2

REPORT INFORMATION
  Report Type: Spontaneous
  Country: US (occurrence: US)
  Receive Date: 20200527
  Receipt Date: 20200527
  Transmission Date: 20200714
  Serious: No
  Sender: FDA-Public Use
  Company Number: US-009507513-2005USA007250

PATIENT
  Sex: Female

DRUGS (2)
  1. PREGNYL [Suspect]
     Active Substance: CHORIOGONADOTROPIN ALFA
     Dosage: INJECT 1000 UNITS INTO MUSCLE ONCE A WEEK
     Route: 030
  2. STERILE DILUENT (WATER) [Suspect]
     Active Substance: WATER
     Dosage: INTRAMUSCULAR INJECTION
     Route: 030
     Dates: start: 20200503

REACTIONS (4)
  - No adverse event [Unknown]
  - Wrong technique in product usage process [Unknown]
  - Product administration error [Unknown]
  - Product dose omission [Unknown]

NARRATIVE: CASE EVENT DATE: 20200503
